FAERS Safety Report 8329859-2 (Version None)
Quarter: 2012Q2

REPORT INFORMATION
  Report Type: 
  Country: None (occurrence: None)
  Receive Date: 20120502
  Receipt Date: 20120418
  Transmission Date: 20120825
  Serious: Yes (Other)
  Sender: FDA-Public Use
  Company Number: HU-ROCHE-1064241

PATIENT
  Age: 59 Year
  Sex: Female

DRUGS (6)
  1. XOLAIR [Suspect]
     Route: 058
     Dates: start: 20120404, end: 20120418
  2. MONTELUKAST [Concomitant]
  3. SYMBICORT [Concomitant]
  4. XOLAIR [Suspect]
     Indication: ASTHMA
     Route: 058
     Dates: start: 20120402
  5. THEOSPIREX [Concomitant]
  6. SPIRIVA [Concomitant]

REACTIONS (3)
  - PYREXIA [None]
  - ARTHRALGIA [None]
  - JOINT SWELLING [None]
